FAERS Safety Report 4450435-6 (Version None)
Quarter: 2004Q3

REPORT INFORMATION
  Report Type: 
  Country: None (occurrence: None)
  Receive Date: 20040915
  Receipt Date: 20040830
  Transmission Date: 20050211
  Serious: Yes (Hospitalization, Other)
  Sender: FDA-Public Use
  Company Number: 203796

PATIENT
  Sex: Male

DRUGS (2)
  1. AVONEX [Suspect]
     Dosage: 30 MCG QW IM
     Route: 030
     Dates: start: 20010101
  2. AVONEX [Suspect]
     Dosage: 30 MCG QW IM
     Route: 030
     Dates: end: 20040801

REACTIONS (2)
  - INFLUENZA LIKE ILLNESS [None]
  - PANCREATITIS ACUTE [None]
